FAERS Safety Report 4358281-9 (Version None)
Quarter: 2004Q2

REPORT INFORMATION
  Report Type: 
  Country: None (occurrence: None)
  Receive Date: 20040510
  Receipt Date: 20040423
  Transmission Date: 20050107
  Serious: Yes (Hospitalization)
  Sender: FDA-Public Use
  Company Number: D01200401430

PATIENT
  Age: 63 Year
  Sex: Female

DRUGS (6)
  1. (FONDAPARINUX) - SOLUTION - UNIT DOSE : UNKNOWN [Suspect]
     Indication: ANGINA UNSTABLE
     Dosage: 2.5 MG QD SUBCUTANEOUS
     Route: 058
     Dates: start: 20040413
  2. ASPIRIN [Concomitant]
  3. CLOPIDOGREL BISULFATE [Concomitant]
  4. ATENOLOL [Concomitant]
  5. RAMIPRIL [Concomitant]
  6. NITRATES [Concomitant]

REACTIONS (1)
  - CORONARY ARTERY THROMBOSIS [None]
